FAERS Safety Report 8634105 (Version 3)
Quarter: 2012Q4

REPORT INFORMATION
  Report Type: Spontaneous
  Country: US (occurrence: None)
  Receive Date: 20120613
  Receipt Date: 20120904
  Transmission Date: 20130627
  Serious: Yes (Hospitalization)
  Sender: FDA-Public Use
  Company Number: AUR-APL-2012-02589

PATIENT
  Age: 78 Year
  Sex: Male
  Weight: 99.3 kg

DRUGS (39)
  1. METOPROLOL TARTRATE [Suspect]
     Indication: HYPERTENSION
     Dosage: (12.5 MG, 2 IN 1 D)
  2. METOPROLOL TARTRATE [Suspect]
     Indication: HYPERTENSION
     Dosage: (25 mg,2 in 1 d)
     Route: 048
     Dates: start: 20120123
  3. SUNITINIB MALATE [Suspect]
     Indication: BONE CANCER
     Dates: start: 20120529, end: 20120602
  4. SUNITINIB MALATE [Suspect]
     Indication: PROSTATE CANCER
     Dates: start: 20120529, end: 20120602
  5. SUNITINIB MALATE [Suspect]
     Indication: RENAL CANCER
     Dates: start: 20120529, end: 20120602
  6. SUNITINIB MALATE [Suspect]
     Indication: ADENOCARCINOMA OF PROSTATE
     Dates: start: 20120529, end: 20120602
  7. SUNITINIB MALATE [Suspect]
     Indication: METASTATIC RENAL CELL CARCINOMA
     Dates: start: 20120529, end: 20120602
  8. SUNITINIB MALATE [Suspect]
     Indication: BONE CANCER
     Dosage: for 4 weeks + 6 weeks
     Route: 048
     Dates: start: 20120529, end: 20120601
  9. SUNITINIB MALATE [Suspect]
     Indication: PROSTATE CANCER
     Dosage: for 4 weeks + 6 weeks
     Route: 048
     Dates: start: 20120529, end: 20120601
  10. SUNITINIB MALATE [Suspect]
     Indication: RENAL CANCER
     Dosage: for 4 weeks + 6 weeks
     Route: 048
     Dates: start: 20120529, end: 20120601
  11. SUNITINIB MALATE [Suspect]
     Indication: ADENOCARCINOMA OF PROSTATE
     Dosage: for 4 weeks + 6 weeks
     Route: 048
     Dates: start: 20120529, end: 20120601
  12. SUNITINIB MALATE [Suspect]
     Indication: METASTATIC RENAL CELL CARCINOMA
     Dosage: for 4 weeks + 6 weeks
     Route: 048
     Dates: start: 20120529, end: 20120601
  13. FENTANYL [Concomitant]
  14. KEPPRA (LEVETIRACETAM) [Concomitant]
  15. TEMAZEPAM (TEMAZEPAM) [Concomitant]
  16. SILODOSIN (SILODOSIN) [Concomitant]
  17. NAPROXEN SODIUM (NAPROXEN SODIUM) [Concomitant]
  18. MULTIVITAMINS (MULTIVITAMINS) [Concomitant]
  19. ASPIRIN (ACETYLSALICYLIC ACID) [Concomitant]
  20. CALCIUM GLUCONATE (CALCIUM GLUCONATE) [Concomitant]
  21. DEXAMETHASONE (DEXAMETHASONE) [Concomitant]
  22. SUNITINIB (SUNITINIB) [Concomitant]
  23. MIRALAX (MACROGOL) [Concomitant]
  24. MIDAZOLAM (MIDAZOLAM) [Concomitant]
  25. CHLORDIAZEPOXIDE (CHLORDIAZEPOXIDE) (CHLORDIAZEPOXIDE) [Concomitant]
  26. METOPROLOL (METOPROLOL) [Concomitant]
  27. DOCUSATE SODIUM (DOCUSATE SODIUM) [Concomitant]
  28. OMEPRAZOLE (OMEPRAZOLE) [Concomitant]
  29. LEVETIRACETAM (LEVETIRACETAM) [Concomitant]
  30. ENOXAPARIN (ENOXAPARIN) [Concomitant]
  31. SODIUM CHLORIDE (SODIUM CHLORIDE) [Concomitant]
  32. MECLIZINE (MECLOZINE) [Concomitant]
  33. PERCOCET (TYLOX /00446701/) [Concomitant]
  34. ALEVE (NAPROXEN SODIUM) [Concomitant]
  35. RAPAFLO (SILODOSIN) [Concomitant]
  36. VITAMINS (KAPSOVIT) [Concomitant]
  37. ZOMETA (ZOLEDRONIC ACID) [Concomitant]
  38. OXYCODONE/PARACETAMOL (OXYCODONE/APAP) [Concomitant]
  39. LUPRON (LEUPRORELIN ACETATE) [Concomitant]

REACTIONS (7)
  - Grand mal convulsion [None]
  - Hypotension [None]
  - Pain in extremity [None]
  - Gait disturbance [None]
  - Malaise [None]
  - Fatigue [None]
  - Convulsion [None]
